FAERS Safety Report 5346899-6 (Version None)
Quarter: 2007Q2

REPORT INFORMATION
  Report Type: 
  Country: None (occurrence: None)
  Receive Date: 20070501
  Receipt Date: 20060804
  Transmission Date: 20071010
  Serious: Yes (Other)
  Sender: FDA-Public Use
  Company Number: 008258

PATIENT
  Age: 51 Year
  Sex: Female

DRUGS (2)
  1. CENESTIN [Suspect]
     Dosage: ORAL
     Route: 048
     Dates: start: 19960101, end: 20030101
  2. PREMARIN [Suspect]
     Dosage: ORAL
     Route: 048
     Dates: start: 19960101, end: 20030101

REACTIONS (1)
  - OVARIAN CANCER [None]
